FAERS Safety Report 9316341 (Version 1)
Quarter: 2013Q2

REPORT INFORMATION
  Report Type: Spontaneous
  Country: IR (occurrence: IR)
  Receive Date: 20130530
  Receipt Date: 20130530
  Transmission Date: 20140414
  Serious: Yes (Other)
  Sender: FDA-Public Use
  Company Number: IR-INDICUS PHARMA-000089

PATIENT
  Age: 63 Year
  Sex: Male

DRUGS (1)
  1. DONEPEZIL [Suspect]
     Indication: DEMENTIA ALZHEIMER^S TYPE

REACTIONS (6)
  - Delirium [Recovered/Resolved]
  - Agitation [None]
  - Confusional state [None]
  - Irritability [None]
  - Aggression [None]
  - Cognitive disorder [None]
